FAERS Safety Report 5372930-8 (Version None)
Quarter: 2007Q2

REPORT INFORMATION
  Report Type: 
  Country: None (occurrence: None)
  Receive Date: 20070621
  Receipt Date: 20060814
  Transmission Date: 20071010
  Serious: Yes (Other)
  Sender: FDA-Public Use
  Company Number: 3004

PATIENT
  Age: 82 Year
  Sex: Female
  Weight: 77.1115 kg

DRUGS (2)
  1. ACYCLOVIR [Suspect]
     Indication: HERPES ZOSTER
     Dosage: 800MG QID ORAL
     Route: 048
     Dates: start: 20060807
  2. HIGH BLOOD PRESSURE MEDICATION [Concomitant]

REACTIONS (5)
  - DRY SKIN [None]
  - EYE SWELLING [None]
  - PRURITUS [None]
  - PYREXIA [None]
  - SWELLING FACE [None]
